FAERS Safety Report 11321416 (Version 1)
Quarter: 2015Q3

REPORT INFORMATION
  Report Type: Spontaneous
  Country: US (occurrence: US)
  Receive Date: 20150729
  Receipt Date: 20150729
  Transmission Date: 20151125
  Serious: No
  Sender: FDA-Public Use
  Company Number: US-ENDO PHARMACEUTICALS INC.-201408156

PATIENT
  Age: 66 Year
  Sex: Male
  Weight: 106.69 kg

DRUGS (1)
  1. TESTOPEL [Suspect]
     Active Substance: TESTOSTERONE
     Indication: HORMONE REPLACEMENT THERAPY
     Dosage: 10 PELLETS
     Route: 058
     Dates: start: 201310

REACTIONS (4)
  - Overdose [Unknown]
  - Implant site erythema [Recovered/Resolved]
  - Implant site pain [Recovered/Resolved]
  - Device dislocation [Recovered/Resolved]

NARRATIVE: CASE EVENT DATE: 201310
